FAERS Safety Report 9059813 (Version 1)
Quarter: 2013Q1

REPORT INFORMATION
  Report Type: Spontaneous
  Country: US (occurrence: None)
  Receive Date: 20130206
  Receipt Date: 20130206
  Transmission Date: 20140127
  Serious: No
  Sender: FDA-Public Use
  Company Number: None

PATIENT
  Age: 49 Year
  Sex: Female
  Weight: 92.99 kg

DRUGS (1)
  1. SMZ/TMP DS 800-160 TAB (GENERIC) [Suspect]
     Indication: SKIN INFECTION
     Route: 048
     Dates: start: 20130118, end: 20130203

REACTIONS (4)
  - Pyrexia [None]
  - Pain [None]
  - Headache [None]
  - Back pain [None]
